FAERS Safety Report 11532877 (Version 1)
Quarter: 2015Q3

REPORT INFORMATION
  Report Type: Spontaneous
  Country: US (occurrence: US)
  Receive Date: 20150921
  Receipt Date: 20150921
  Transmission Date: 20151125
  Serious: Yes (Other)
  Sender: FDA-Public Use
  Company Number: US-MYLANLABS-2015M1030794

PATIENT

DRUGS (1)
  1. INDOMETACIN [Suspect]
     Active Substance: INDOMETHACIN
     Dosage: UNK
     Route: 065

REACTIONS (6)
  - Headache [Unknown]
  - Nightmare [Unknown]
  - Tremor [Unknown]
  - Suicidal ideation [Unknown]
  - Anxiety [Unknown]
  - Drug hypersensitivity [Unknown]
